FAERS Safety Report 10411755 (Version 1)
Quarter: 2014Q2

REPORT INFORMATION
  Report Type: Spontaneous
  Country: US (occurrence: None)
  Receive Date: 20140604
  Receipt Date: 20140604
  Transmission Date: 20141212
  Serious: Yes (Hospitalization)
  Sender: FDA-Public Use
  Company Number: 163-POMAL-14041717

PATIENT
  Age: 83 Year
  Sex: Female

DRUGS (4)
  1. POMALYST [Suspect]
     Indication: PLASMA CELL MYELOMA
     Route: 048
     Dates: start: 201304
  2. DEXAMETHASONE (DEXAMETHASONE) [Concomitant]
  3. GABAPENTIN (GABAPENTIN) [Concomitant]
  4. ZANTAC (RANITIDINE HYDROCHLORIDE) [Concomitant]

REACTIONS (1)
  - Pneumonia [None]
